FAERS Safety Report 8853312 (Version 1)
Quarter: 2012Q4

REPORT INFORMATION
  Report Type: 
  Country: GB (occurrence: GB)
  Receive Date: 20121022
  Receipt Date: 20121022
  Transmission Date: 20130627
  Serious: Yes (Disabling)
  Sender: FDA-Public Use
  Company Number: GB-ASTRAZENECA-2012SE78734

PATIENT
  Age: 31 Year
  Sex: Male
  Weight: 73 kg

DRUGS (6)
  1. QUETIAPINE [Suspect]
     Route: 048
     Dates: start: 20110606, end: 20120827
  2. QUETIAPINE [Suspect]
     Route: 048
  3. GARLIC EXTRACT [Concomitant]
  4. MILK THISTLE SEED EXTRACT [Concomitant]
  5. PASSIFLORA [Concomitant]
  6. VALERIAN ROOT DRY EXTRACT [Concomitant]

REACTIONS (8)
  - Discomfort [Unknown]
  - Pollakiuria [Unknown]
  - Insomnia [Not Recovered/Not Resolved]
  - Pruritus [Unknown]
  - Diarrhoea [Unknown]
  - Rhinorrhoea [Unknown]
  - Lacrimation increased [Unknown]
  - Drug withdrawal syndrome [Not Recovered/Not Resolved]
